FAERS Safety Report 8929339 (Version 4)
Quarter: 2013Q1

REPORT INFORMATION
  Report Type: Spontaneous
  Country: PL (occurrence: None)
  Receive Date: 20121119
  Receipt Date: 20130122
  Transmission Date: 20140127
  Serious: Yes (Life-Threatening, Hospitalization, Disabling, Other)
  Sender: FDA-Public Use
  Company Number: 2012DEPPL00457

PATIENT
  Age: 71 Year
  Sex: Male
  Weight: 94 kg

DRUGS (9)
  1. DEPOCYTE (CYTARABINE) LIPOSOME INJECTABLE SUSPENSION, MG [Suspect]
     Indication: DIFFUSE LARGE B-CELL LYMPHOMA STAGE I
     Route: 037
     Dates: start: 20121031, end: 20121031
  2. DEPOCYTE (CYTARABINE) LIPOSOME INJECTABLE SUSPENSION, MG [Suspect]
     Indication: TESTIS CANCER
     Route: 037
     Dates: start: 20121031, end: 20121031
  3. METFORMIN (METFORMIN HYDROCHLORIDE) [Concomitant]
  4. CARVEDILOL (CARVEDILOL) [Concomitant]
  5. RAMIPRIL ACTAVIS (RAMIPRIL) [Concomitant]
  6. MILURIT (ALLOPURINOL) [Concomitant]
  7. INSULIN LISPRO (INSULIN LISPRO) [Concomitant]
  8. ROSUVASTATIN TEVA (ROSUVASTATIN CALCIUM) [Concomitant]
  9. AMLODIPINE (AMLODIPINE) [Concomitant]

REACTIONS (11)
  - Meningitis chemical [None]
  - Loss of consciousness [None]
  - Deafness [None]
  - Tachycardia [None]
  - Tachypnoea [None]
  - Performance status decreased [None]
  - Hypotonia [None]
  - Aphasia [None]
  - Retrograde amnesia [None]
  - Motor dysfunction [None]
  - Paraesthesia [None]
